FAERS Safety Report 14741916 (Version 2)
Quarter: 2018Q2

REPORT INFORMATION
  Report Type: Report from Study
  Country: DE (occurrence: DE)
  Receive Date: 20180410
  Receipt Date: 20180509
  Transmission Date: 20180711
  Serious: Yes (Disabling, Other)
  Sender: FDA-Public Use
  Company Number: PHHY2018DE057406

PATIENT
  Sex: Female
  Weight: 59 kg

DRUGS (3)
  1. L-THYROX [Concomitant]
     Active Substance: LEVOTHYROXINE SODIUM
     Indication: HYPOTHYROIDISM
     Dosage: 50 UG, QD
     Route: 065
     Dates: start: 201712
  2. COSENTYX [Suspect]
     Active Substance: SECUKINUMAB
     Indication: PSORIASIS
     Dosage: 300 MG, QMO (EVERY 4 WEEKS)
     Route: 058
     Dates: start: 20170411, end: 20171215
  3. COSENTYX [Suspect]
     Active Substance: SECUKINUMAB
     Indication: PSORIATIC ARTHROPATHY

REACTIONS (3)
  - Vitamin D deficiency [Not Recovered/Not Resolved]
  - Erysipelas [Recovered/Resolved]
  - Peroneal nerve palsy [Not Recovered/Not Resolved]

NARRATIVE: CASE EVENT DATE: 20180212
